FAERS Safety Report 25635295 (Version 1)
Quarter: 2025Q3

REPORT INFORMATION
  Report Type: Spontaneous
  Country: US (occurrence: US)
  Receive Date: 20250802
  Receipt Date: 20250802
  Transmission Date: 20251021
  Serious: No
  Sender: ALEXION PHARMACEUTICALS
  Company Number: US-AstraZeneca-CH-00922511A

PATIENT
  Age: 71 Year
  Sex: Female
  Weight: 58.966 kg

DRUGS (1)
  1. CRESTOR [Suspect]
     Active Substance: ROSUVASTATIN CALCIUM
     Indication: Blood cholesterol increased
     Dosage: 20 MILLIGRAM, QD
     Dates: end: 20250610

REACTIONS (4)
  - Burning mouth syndrome [Not Recovered/Not Resolved]
  - Glossodynia [Recovering/Resolving]
  - Oral discomfort [Recovering/Resolving]
  - Paraesthesia [Recovering/Resolving]

NARRATIVE: CASE EVENT DATE: 20250505
